FAERS Safety Report 8022011-X (Version None)
Quarter: 2012Q1

REPORT INFORMATION
  Report Type: 
  Country: None (occurrence: None)
  Receive Date: 20120104
  Receipt Date: 20111228
  Transmission Date: 20120608
  Serious: Yes (Other)
  Sender: FDA-Public Use
  Company Number: US-ASTRAZENECA-2009SE22852

PATIENT
  Age: 48 Year
  Sex: Male
  Weight: 143.3 kg

DRUGS (22)
  1. CORTEF [Concomitant]
     Dates: start: 20060101
  2. ZOCOR [Concomitant]
     Dates: start: 20060101
  3. SEROQUEL [Suspect]
     Route: 048
     Dates: start: 20041001, end: 20051101
  4. SEROQUEL [Suspect]
     Route: 048
     Dates: start: 20041001, end: 20051101
  5. LEXAPRO [Concomitant]
     Dates: start: 20060101
  6. DILANTIN [Concomitant]
     Indication: CONVULSION
     Dates: start: 20060101
  7. LIPITOR [Concomitant]
     Dates: start: 20060101
  8. SEROQUEL [Suspect]
     Indication: AGITATION
     Route: 048
     Dates: start: 20040101, end: 20060101
  9. SEROQUEL [Suspect]
     Route: 048
     Dates: start: 20040317
  10. PHENOBARBITAL TAB [Concomitant]
     Indication: CONVULSION
     Dates: start: 20060101
  11. SEROQUEL [Suspect]
     Route: 048
     Dates: start: 20040317
  12. SYNTHROID [Concomitant]
     Dates: start: 20060101
  13. RISPERDAL [Concomitant]
  14. ANDROGEL [Concomitant]
     Dates: start: 20060101
  15. SEROQUEL [Suspect]
     Indication: DEPRESSION
     Route: 048
     Dates: start: 20040101, end: 20060101
  16. ZYPREXA [Concomitant]
  17. DDAVP [Concomitant]
     Dates: start: 20060101
  18. LASIX [Concomitant]
     Dates: start: 20060101
  19. SYMMETREL [Concomitant]
     Dates: start: 20060101
  20. ALBUTEROL [Concomitant]
     Dates: start: 20060101
  21. COUMADIN [Concomitant]
     Dates: start: 20060101
  22. ADVAIR DISKUS 100/50 [Concomitant]
     Dates: start: 20060101

REACTIONS (9)
  - PARKINSON'S DISEASE [None]
  - NEUROPATHY PERIPHERAL [None]
  - DIABETES INSIPIDUS [None]
  - TYPE 2 DIABETES MELLITUS [None]
  - PNEUMOCYSTIS JIROVECI PNEUMONIA [None]
  - LIVER FUNCTION TEST ABNORMAL [None]
  - LIVER DISORDER [None]
  - POST-TRAUMATIC STRESS DISORDER [None]
  - RENAL FAILURE CHRONIC [None]
